FAERS Safety Report 6749956-2 (Version None)
Quarter: 2010Q2

REPORT INFORMATION
  Report Type: 
  Country: None (occurrence: None)
  Receive Date: 20100601
  Receipt Date: 20100518
  Transmission Date: 20101027
  Serious: Yes (Other)
  Sender: FDA-Public Use
  Company Number: US-ELI_LILLY_AND_COMPANY-US201005006623

PATIENT
  Sex: Female

DRUGS (4)
  1. FORTEO [Suspect]
     Indication: OSTEOPOROSIS
     Dosage: 20 UG, DAILY (1/D)
     Dates: start: 20090101, end: 20100401
  2. VERAPAMIL [Concomitant]
  3. LIPITOR [Concomitant]
  4. ANALGESICS [Concomitant]

REACTIONS (3)
  - CYST [None]
  - PANCREATIC NEOPLASM [None]
  - RENAL NEOPLASM [None]
